FAERS Safety Report 22250158 (Version 2)
Quarter: 2023Q2

REPORT INFORMATION
  Report Type: Spontaneous
  Country: US (occurrence: US)
  Receive Date: 20230425
  Receipt Date: 20230531
  Transmission Date: 20230721
  Serious: Yes (Other)
  Sender: FDA-Public Use
  Company Number: None

PATIENT
  Age: 76 Year
  Sex: Male
  Weight: 190 kg

DRUGS (3)
  1. GUAIFENESIN [Suspect]
     Active Substance: GUAIFENESIN
     Indication: Productive cough
     Route: 048
     Dates: start: 202303, end: 20230407
  2. ASPIRIN [Concomitant]
     Active Substance: ASPIRIN
     Indication: Product used for unknown indication
     Route: 065
  3. VITAMINS NOS [Concomitant]
     Active Substance: VITAMINS
     Indication: Product used for unknown indication
     Route: 065

REACTIONS (7)
  - Foreign body in throat [Unknown]
  - Dysphagia [Unknown]
  - Oropharyngeal pain [Recovering/Resolving]
  - Pharyngeal contusion [Recovering/Resolving]
  - Product size issue [Unknown]
  - Product physical issue [Unknown]
  - Expired product administered [Unknown]

NARRATIVE: CASE EVENT DATE: 20230101
